FAERS Safety Report 15958814 (Version 2)
Quarter: 2019Q1

REPORT INFORMATION
  Report Type: Spontaneous
  Country: AT (occurrence: AT)
  Receive Date: 20190213
  Receipt Date: 20190218
  Transmission Date: 20190417
  Serious: Yes (Hospitalization)
  Sender: FDA-Public Use
  Company Number: AT-ABBVIE-19K-009-2660494-00

PATIENT
  Sex: Male
  Weight: 90 kg

DRUGS (9)
  1. MAVIRET [Suspect]
     Active Substance: GLECAPREVIR\PIBRENTASVIR
     Indication: HEPATITIS C
  2. DILATREND [Concomitant]
     Active Substance: CARVEDILOL
     Indication: HEPATIC CIRRHOSIS
     Route: 048
  3. FUROHEXAL [Concomitant]
     Indication: HEPATIC CIRRHOSIS
     Route: 048
  4. FUROHEXAL [Concomitant]
     Indication: OEDEMA
  5. MAVIRET [Suspect]
     Active Substance: GLECAPREVIR\PIBRENTASVIR
     Indication: CHRONIC HEPATITIS C
     Dosage: 100/40
     Route: 048
     Dates: start: 20190108
  6. DILATREND [Concomitant]
     Active Substance: CARVEDILOL
     Indication: PORTAL HYPERTENSION
  7. SPIROBENE [Concomitant]
     Active Substance: SPIRONOLACTONE
     Indication: HEPATIC CIRRHOSIS
  8. MAVIRET [Suspect]
     Active Substance: GLECAPREVIR\PIBRENTASVIR
     Indication: HEPATIC CIRRHOSIS
  9. SPIROBENE [Concomitant]
     Active Substance: SPIRONOLACTONE
     Indication: OEDEMA
     Route: 048

REACTIONS (5)
  - Splenomegaly [Unknown]
  - Developmental delay [Unknown]
  - Child-Pugh-Turcotte score increased [Recovering/Resolving]
  - Ascites [Unknown]
  - Encephalopathy [Unknown]

NARRATIVE: CASE EVENT DATE: 2019
